FAERS Safety Report 6938465-3 (Version None)
Quarter: 2010Q3

REPORT INFORMATION
  Report Type: 
  Country: None (occurrence: None)
  Receive Date: 20100824
  Receipt Date: 20100818
  Transmission Date: 20110219
  Serious: Yes (Other)
  Sender: FDA-Public Use
  Company Number: JP-SANOFI-AVENTIS-2010SA000982

PATIENT
  Age: 73 Year
  Sex: Male

DRUGS (1)
  1. TAXOTERE [Suspect]
     Indication: LUNG SQUAMOUS CELL CARCINOMA RECURRENT
     Dosage: THE PATIENT WAS IN 2ND COURSE OF THE THERAPY
     Route: 041
     Dates: start: 20090812

REACTIONS (2)
  - CARDIO-RESPIRATORY ARREST [None]
  - PRINZMETAL ANGINA [None]
